FAERS Safety Report 14672442 (Version 1)
Quarter: 2018Q1

REPORT INFORMATION
  Report Type: Spontaneous
  Country: SE (occurrence: SE)
  Receive Date: 20180323
  Receipt Date: 20180323
  Transmission Date: 20180509
  Serious: Yes (Death)
  Sender: FDA-Public Use
  Company Number: SE-ASTRAZENECA-2018SE33326

PATIENT
  Age: 76 Year
  Sex: Male

DRUGS (3)
  1. ABBOTICIN [Interacting]
     Active Substance: ERYTHROMYCIN STEARATE
     Indication: ILEUS PARALYTIC
     Route: 065
     Dates: start: 20180218, end: 20180219
  2. BRILIQUE [Suspect]
     Active Substance: TICAGRELOR
     Indication: VASCULAR STENT THROMBOSIS
     Route: 048
     Dates: start: 20180209, end: 20180228
  3. TROMBYL [Concomitant]
     Active Substance: ASPIRIN
     Dates: start: 20180209

REACTIONS (3)
  - Drug interaction [Fatal]
  - Cerebellar infarction [Fatal]
  - Brain stem infarction [Fatal]

NARRATIVE: CASE EVENT DATE: 201802
